FAERS Safety Report 26144351 (Version 1)
Quarter: 2025Q4

REPORT INFORMATION
  Report Type: Spontaneous
  Country: IN (occurrence: IN)
  Receive Date: 20251211
  Receipt Date: 20251211
  Transmission Date: 20260118
  Serious: Yes (Other)
  Sender: STRIDES
  Company Number: None

PATIENT
  Age: 74 Year
  Sex: Male

DRUGS (7)
  1. DOXORUBICIN [Suspect]
     Active Substance: DOXORUBICIN
     Indication: High-grade B-cell lymphoma
     Dosage: AFTER COMPLETING FOUR CYCLES OF R-CHOP REGIMEN, TWO MORE CYCLES OF R MINI-CHOP WERE CONTINUED
     Route: 065
     Dates: start: 2024
  2. PREDNISOLONE [Suspect]
     Active Substance: PREDNISOLONE
     Indication: High-grade B-cell lymphoma
     Dosage: AFTER COMPLETING FOUR CYCLES OF R-CHOP REGIMEN, TWO MORE CYCLES OF R MINI-CHOP WERE CONTINUED
     Route: 065
     Dates: start: 2024
  3. RITUXIMAB [Suspect]
     Active Substance: RITUXIMAB
     Indication: High-grade B-cell lymphoma
     Dosage: AFTER COMPLETING FOUR CYCLES OF R-CHOP REGIMEN, TWO MORE CYCLES OF R MINI-CHOP WERE CONTINUED
     Route: 065
     Dates: start: 2024
  4. CYCLOPHOSPHAMIDE [Suspect]
     Active Substance: CYCLOPHOSPHAMIDE
     Indication: High-grade B-cell lymphoma
     Dosage: A PART OF R-CHOP AFTER COMPLETING FOUR CYCLES OF R-CHOP REGIMEN, TWO MORE CYCLES OF R MINI-CHOP WERE
     Route: 065
     Dates: start: 2024
  5. VINCRISTINE [Suspect]
     Active Substance: VINCRISTINE
     Indication: High-grade B-cell lymphoma
     Dosage: AFTER COMPLETING FOUR CYCLES OF R-CHOP REGIMEN, TWO MORE CYCLES OF R MINI-CHOP WERE CONTINUED
     Route: 065
     Dates: start: 2024
  6. NOREPINEPHRINE BITARTRATE [Concomitant]
     Active Substance: NOREPINEPHRINE BITARTRATE
     Indication: Haemophagocytic lymphohistiocytosis
     Dosage: UNK
     Route: 065
     Dates: start: 2024, end: 2024
  7. Immunoglobulin [Concomitant]
     Indication: Acute motor-sensory axonal neuropathy
     Dosage: UNK
     Route: 065
     Dates: start: 2024

REACTIONS (1)
  - Neurotoxicity [Unknown]

NARRATIVE: CASE EVENT DATE: 20240101
